FAERS Safety Report 6221665-8 (Version None)
Quarter: 2009Q2

REPORT INFORMATION
  Report Type: 
  Country: None (occurrence: None)
  Receive Date: 20090610
  Receipt Date: 20090602
  Transmission Date: 20091009
  Serious: Yes (Hospitalization)
  Sender: FDA-Public Use
  Company Number: PHHO2007DK19498

PATIENT
  Sex: Male

DRUGS (1)
  1. RAD 666 RAD++PTR [Suspect]
     Indication: LUNG TRANSPLANT
     Dosage: 1.5 MG, BID
     Route: 048
     Dates: start: 20060620, end: 20071217

REACTIONS (3)
  - BRONCHITIS [None]
  - DYSPNOEA [None]
  - PULMONARY EMBOLISM [None]
